FAERS Safety Report 8992684 (Version 4)
Quarter: 2019Q3

REPORT INFORMATION
  Report Type: Spontaneous
  Country: ES (occurrence: US)
  Receive Date: 20130101
  Receipt Date: 20190917
  Transmission Date: 20191005
  Serious: Yes (Life-Threatening, Hospitalization, Other)
  Sender: FDA-Public Use
  Company Number: US-009507513-0903USA00788

PATIENT
  Age: 75 Year
  Sex: Female
  Weight: 83.2 kg

DRUGS (20)
  1. DILTIAZEM HYDROCHLORIDE. [Concomitant]
     Active Substance: DILTIAZEM HYDROCHLORIDE
     Dosage: 240 MG, QD
     Route: 048
  2. LEVOTHYROXINE SODIUM. [Concomitant]
     Active Substance: LEVOTHYROXINE SODIUM
     Dosage: 88 MICROGRAM, QD
     Route: 048
  3. PYRIDOXINE [Concomitant]
     Active Substance: PYRIDOXINE
  4. METHOCARBAMOL. [Concomitant]
     Active Substance: METHOCARBAMOL
     Dosage: 750 MG, UNK
  5. JANUVIA [Suspect]
     Active Substance: SITAGLIPTIN PHOSPHATE
     Indication: DIABETES MELLITUS
     Dosage: 100 MG, QD
     Route: 048
  6. METOCLOPRAMIDE. [Concomitant]
     Active Substance: METOCLOPRAMIDE
     Dosage: 10 MG, PRN
  7. HYDROMORPHONE [Concomitant]
     Active Substance: HYDROMORPHONE
     Dosage: 4 MG, UNK
  8. DI-GESIC [Concomitant]
     Active Substance: ACETAMINOPHEN\PROPOXYPHENE HYDROCHLORIDE
     Dosage: 650-100
  9. FOLIC ACID. [Concomitant]
     Active Substance: FOLIC ACID
  10. GLIMEPIRIDE. [Concomitant]
     Active Substance: GLIMEPIRIDE
     Dosage: 1 MG, QD
  11. TIOTROPIUM BROMIDE [Concomitant]
     Active Substance: TIOTROPIUM BROMIDE
     Dosage: 18 MICROGRAM, QD
  12. PENICILLIN (UNSPECIFIED) [Concomitant]
     Active Substance: PENICILLIN
  13. HYDROCHLOROTHIAZIDE. [Concomitant]
     Active Substance: HYDROCHLOROTHIAZIDE
     Dosage: 12.5 MG, QD
     Route: 048
  14. FOSAMAX [Concomitant]
     Active Substance: ALENDRONATE SODIUM
     Dosage: 70 MG, QW
     Route: 048
  15. PROPOXYPHENE. [Concomitant]
     Active Substance: PROPOXYPHENE
  16. NEXIUM [Concomitant]
     Active Substance: ESOMEPRAZOLE MAGNESIUM
     Dosage: 40 MG, QD
     Route: 048
  17. ROSIGLITAZONE MALEATE. [Concomitant]
     Active Substance: ROSIGLITAZONE MALEATE
  18. PIOGLITAZONE HYDROCHLORIDE. [Concomitant]
     Active Substance: PIOGLITAZONE HYDROCHLORIDE
  19. MEVACOR [Interacting]
     Active Substance: LOVASTATIN
     Indication: HYPERLIPIDAEMIA
     Dosage: 40 MG, HS
     Route: 048
  20. DODEX [Concomitant]
     Active Substance: CYANOCOBALAMIN
     Dosage: UNK UNK, QD

REACTIONS (9)
  - Alanine aminotransferase increased [Recovered/Resolved]
  - Anxiety [Unknown]
  - Aspartate aminotransferase increased [Recovered/Resolved]
  - Rhabdomyolysis [Recovered/Resolved]
  - Fall [Unknown]
  - Weight decreased [Unknown]
  - Drug interaction [Unknown]
  - Hypertension [Unknown]
  - Back pain [Unknown]
